FAERS Safety Report 10052584 (Version 2)
Quarter: 2014Q2

REPORT INFORMATION
  Report Type: Report from Study
  Country: BR (occurrence: BR)
  Receive Date: 20140402
  Receipt Date: 20140402
  Transmission Date: 20141212
  Serious: Yes (Hospitalization, Other)
  Sender: FDA-Public Use
  Company Number: BR-ROCHE-1022280

PATIENT
  Age: 70 Year
  Sex: Female
  Weight: 53 kg

DRUGS (5)
  1. ACTEMRA [Suspect]
     Indication: AMYLOIDOSIS
     Route: 065
     Dates: start: 2011
  2. ACTEMRA [Suspect]
     Indication: RHEUMATOID ARTHRITIS
  3. ENALAPRIL [Concomitant]
  4. GLIFAGE [Concomitant]
  5. CODEINE [Concomitant]
     Indication: PAIN
     Route: 065

REACTIONS (5)
  - Tooth infection [Recovered/Resolved]
  - Osteitis [Recovered/Resolved]
  - Trigeminal nerve disorder [Recovered/Resolved]
  - Impaired healing [Recovered/Resolved]
  - Blood parathyroid hormone increased [Not Recovered/Not Resolved]
